FAERS Safety Report 7738609-X (Version None)
Quarter: 2011Q3

REPORT INFORMATION
  Report Type: 
  Country: None (occurrence: None)
  Receive Date: 20110908
  Receipt Date: 20110831
  Transmission Date: 20111222
  Serious: Yes (Hospitalization)
  Sender: FDA-Public Use
  Company Number: US-ASTRAZENECA-2011SE51099

PATIENT
  Age: 591 Month
  Sex: Female

DRUGS (5)
  1. SEROQUEL [Suspect]
     Indication: BIPOLAR DISORDER
     Route: 048
  2. SEROQUEL [Suspect]
     Route: 048
  3. SEROQUEL [Suspect]
     Route: 048
  4. SEROQUEL [Suspect]
     Route: 048
  5. LITHIUM CARBONATE [Concomitant]

REACTIONS (9)
  - BIPOLAR DISORDER [None]
  - PSYCHOMOTOR HYPERACTIVITY [None]
  - DEPRESSION [None]
  - APHAGIA [None]
  - MANIA [None]
  - INCORRECT DOSE ADMINISTERED [None]
  - INSOMNIA [None]
  - DYSPHONIA [None]
  - DRUG DOSE OMISSION [None]
